FAERS Safety Report 5313051-X (Version None)
Quarter: 2007Q1

REPORT INFORMATION
  Report Type: 
  Country: None (occurrence: None)
  Receive Date: 20070201
  Receipt Date: 20061009
  Transmission Date: 20070707
  Serious: No
  Sender: FDA-Public Use
  Company Number: VNL_0240_2006

PATIENT
  Age: 56 Year
  Sex: Female
  Weight: 61.2356 kg

DRUGS (5)
  1. APOKYN [Suspect]
     Indication: PARKINSON'S DISEASE
     Dosage: 0.35 ML VARIABLE SC
     Route: 058
     Dates: start: 20010401
  2. PROPOXYPHENE NAPSYLATE AND ACETAMINOPHEN [Suspect]
     Indication: PAIN
     Dosage: 1 TAB VARIABLE PO
     Route: 048
     Dates: start: 20060620, end: 20060622
  3. CARBIDOPA AND LEVODOPA [Concomitant]
  4. COMTAN [Concomitant]
  5. AMANTADINE HCL [Concomitant]

REACTIONS (3)
  - CLAVICLE FRACTURE [None]
  - DIZZINESS [None]
  - POSTURE ABNORMAL [None]
